FAERS Safety Report 10339003 (Version 1)
Quarter: 2014Q3

REPORT INFORMATION
  Report Type: Spontaneous
  Country: CA (occurrence: CA)
  Receive Date: 20140724
  Receipt Date: 20140724
  Transmission Date: 20150326
  Serious: Yes (Disabling)
  Sender: FDA-Public Use
  Company Number: CA-ROCHE-1438266

PATIENT
  Age: 31 Year
  Sex: Male
  Weight: 83 kg

DRUGS (3)
  1. HYDROCHLOROTHIAZIDE. [Concomitant]
     Active Substance: HYDROCHLOROTHIAZIDE
  2. ZYPREXA [Suspect]
     Active Substance: OLANZAPINE
     Indication: PRODUCT USED FOR UNKNOWN INDICATION
     Dosage: THERAPY DURATION: 5 MONTHS
     Route: 048
  3. CLONAZEPAM. [Suspect]
     Active Substance: CLONAZEPAM
     Indication: PRODUCT USED FOR UNKNOWN INDICATION
     Dosage: THERAPY DURATION: 365 DAYS
     Route: 048

REACTIONS (7)
  - Dissociation [Unknown]
  - Thinking abnormal [Unknown]
  - Emotional poverty [Unknown]
  - Tinnitus [Unknown]
  - Visual impairment [Unknown]
  - Dizziness [Unknown]
  - Paraesthesia [Unknown]
